FAERS Safety Report 8363961-4 (Version None)
Quarter: 2012Q2

REPORT INFORMATION
  Report Type: 
  Country: None (occurrence: None)
  Receive Date: 20120516
  Receipt Date: 20120514
  Transmission Date: 20120825
  Serious: Yes (Other)
  Sender: FDA-Public Use
  Company Number: US-PFIZER INC-2012117506

PATIENT
  Sex: Female
  Weight: 61.224 kg

DRUGS (3)
  1. FLECTOR [Suspect]
     Indication: LIGAMENT SPRAIN
     Dosage: UNK
     Dates: start: 20120321
  2. LOPRESSOR [Concomitant]
     Indication: HYPERTENSION
     Dosage: 100 MG, DAILY
  3. MICARDIS [Concomitant]
     Indication: HYPERTENSION
     Dosage: 80 MG, DAILY

REACTIONS (6)
  - TRAUMATIC HAEMORRHAGE [None]
  - GASTRIC DISORDER [None]
  - INJURY [None]
  - NAUSEA [None]
  - LIGAMENT SPRAIN [None]
  - FALL [None]
